FAERS Safety Report 5710228-6 (Version None)
Quarter: 2008Q2

REPORT INFORMATION
  Report Type: 
  Country: None (occurrence: None)
  Receive Date: 20080418
  Receipt Date: 20080407
  Transmission Date: 20081010
  Serious: Yes (Other)
  Sender: FDA-Public Use
  Company Number: US-PFIZER INC-2008015866

PATIENT
  Sex: Female
  Weight: 104.3 kg

DRUGS (3)
  1. CHANTIX [Suspect]
     Indication: SMOKING CESSATION THERAPY
     Route: 048
     Dates: start: 20080105, end: 20080201
  2. LEXAPRO [Concomitant]
     Route: 048
  3. CLONAZEPAM [Concomitant]
     Route: 048

REACTIONS (12)
  - ABNORMAL DREAMS [None]
  - BODY HEIGHT DECREASED [None]
  - EMOTIONAL DISTRESS [None]
  - HOT FLUSH [None]
  - MENOPAUSAL SYMPTOMS [None]
  - MUSCLE SPASMS [None]
  - NAUSEA [None]
  - PNEUMONIA [None]
  - POOR QUALITY SLEEP [None]
  - UNEVALUABLE EVENT [None]
  - VULVAL CANCER [None]
  - WEIGHT INCREASED [None]
